FAERS Safety Report 6243744-1 (Version None)
Quarter: 2009Q2

REPORT INFORMATION
  Report Type: 
  Country: None (occurrence: None)
  Receive Date: 20090624
  Receipt Date: 20090616
  Transmission Date: 20091009
  Serious: Yes (Hospitalization)
  Sender: FDA-Public Use
  Company Number: US-AVENTIS-200916212GDDC

PATIENT
  Age: 71 Year
  Sex: Male

DRUGS (3)
  1. TAXOTERE [Suspect]
     Indication: HEAD AND NECK CANCER
     Dosage: DOSE: UNK
     Route: 042
     Dates: start: 20090323, end: 20090520
  2. CETUXIMAB [Suspect]
     Indication: HEAD AND NECK CANCER
     Dosage: DOSE: UNK
     Dates: start: 20090323, end: 20090520
  3. RADIATION THERAPY [Suspect]
     Indication: HEAD AND NECK CANCER
     Dates: start: 20090323, end: 20090520

REACTIONS (1)
  - AMAUROSIS FUGAX [None]
